FAERS Safety Report 22152673 (Version 1)
Quarter: 2023Q1

REPORT INFORMATION
  Report Type: Report from Study
  Country: US (occurrence: US)
  Receive Date: 20230329
  Receipt Date: 20230329
  Transmission Date: 20230418
  Serious: Yes (Other)
  Sender: FDA-Public Use
  Company Number: US-TAKEDA-2018TUS022613

PATIENT
  Sex: Female
  Weight: 58.957 kg

DRUGS (3)
  1. PONATINIB [Suspect]
     Active Substance: PONATINIB
     Indication: Chronic myeloid leukaemia
     Dosage: 30 MILLIGRAM, QD
     Route: 048
     Dates: start: 201710
  2. PONATINIB [Suspect]
     Active Substance: PONATINIB
     Indication: Acute lymphocytic leukaemia (in remission)
     Dosage: 30 MILLIGRAM, QD
     Route: 048
     Dates: start: 20181204
  3. PONATINIB [Suspect]
     Active Substance: PONATINIB
     Dosage: 15 MILLIGRAM, QD
     Route: 065

REACTIONS (9)
  - Renal impairment [Unknown]
  - Cerebrovascular accident [Unknown]
  - Oedema peripheral [Unknown]
  - Vision blurred [Unknown]
  - Headache [Unknown]
  - Blood pressure increased [Unknown]
  - Visual impairment [Unknown]
  - Peripheral arterial occlusive disease [Unknown]
  - Product dose omission issue [Unknown]
